FAERS Safety Report 22400375 (Version 1)
Quarter: 2023Q2

REPORT INFORMATION
  Report Type: Spontaneous
  Country: US (occurrence: None)
  Receive Date: 20230601
  Receipt Date: 20230601
  Transmission Date: 20230721
  Serious: No
  Sender: FDA-Public Use
  Company Number: None

PATIENT
  Sex: Female

DRUGS (1)
  1. GLATIRAMER ACETATE [Suspect]
     Active Substance: GLATIRAMER ACETATE
     Dosage: OTHER FREQUENCY : OTHER;?
     Route: 058

REACTIONS (6)
  - Back pain [None]
  - Pain in extremity [None]
  - Pain in extremity [None]
  - Feeling cold [None]
  - Burning sensation [None]
  - Dysstasia [None]
